FAERS Safety Report 7433917-4 (Version None)
Quarter: 2011Q2

REPORT INFORMATION
  Report Type: 
  Country: None (occurrence: None)
  Receive Date: 20110420
  Receipt Date: 20110420
  Transmission Date: 20111010
  Serious: Yes (Other)
  Sender: FDA-Public Use
  Company Number: None

PATIENT
  Age: 68 Year
  Sex: Female

DRUGS (11)
  1. CARISOPRODOL [Concomitant]
  2. LISINOPRIL [Concomitant]
  3. HYDROCHLOROTHIAZIDE [Concomitant]
  4. OMEPRAZOLE [Concomitant]
  5. REVLIMID [Suspect]
     Indication: MULTIPLE MYELOMA
     Dosage: REVLIMID 10 MG DAILY ORALLY
     Route: 048
     Dates: start: 20090301, end: 20091201
  6. ESCITALOPRAM [Concomitant]
  7. LEVOTHYROXINE SODIUM [Concomitant]
  8. DICLOFENAC [Concomitant]
  9. LORAZEPAM [Concomitant]
  10. FLUTICASONE PROPIONATE [Concomitant]
  11. SIMVASTATIN [Concomitant]

REACTIONS (3)
  - MYALGIA [None]
  - PYREXIA [None]
  - DEEP VEIN THROMBOSIS [None]
